FAERS Safety Report 17011802 (Version 2)
Quarter: 2020Q2

REPORT INFORMATION
  Report Type: Report from Study
  Country: CN (occurrence: CN)
  Receive Date: 20191108
  Receipt Date: 20200406
  Transmission Date: 20200713
  Serious: Yes (Death)
  Sender: FDA-Public Use
  Company Number: CN-ROCHE-2456205

PATIENT
  Age: 66 Year
  Sex: Female
  Weight: 60 kg

DRUGS (28)
  1. OXALIPLATIN. [Suspect]
     Active Substance: OXALIPLATIN
     Indication: COLORECTAL CANCER METASTATIC
     Route: 041
     Dates: start: 20181227, end: 20190110
  2. SODIUM CHLORIDE. [Concomitant]
     Active Substance: SODIUM CHLORIDE
     Route: 065
     Dates: start: 20190112
  3. STERILE WATER [Concomitant]
     Active Substance: WATER
     Route: 065
     Dates: start: 20190112
  4. POLYGELINE [Concomitant]
     Active Substance: POLYGELINE
     Route: 042
     Dates: start: 20190112
  5. NORADRENALINE BITARTRATE [Concomitant]
     Active Substance: NOREPINEPHRINE BITARTRATE
     Route: 042
     Dates: start: 20190112
  6. SOMATOSTATIN [Concomitant]
     Active Substance: SOMATOSTATIN
     Route: 065
     Dates: start: 20190112
  7. FENTANYL CITRATE. [Concomitant]
     Active Substance: FENTANYL CITRATE
     Route: 042
     Dates: start: 20190112
  8. STERILE WATER [Concomitant]
     Active Substance: WATER
     Route: 065
     Dates: start: 20190112
  9. CALCIUM DIBUTYRYLADENOSINE CYCLOPHOSPHATE [Concomitant]
     Route: 042
     Dates: start: 20190112
  10. ISOSORBIDE DINITRATE. [Concomitant]
     Active Substance: ISOSORBIDE DINITRATE
     Route: 042
     Dates: start: 20190112
  11. CAPECITABINE. [Suspect]
     Active Substance: CAPECITABINE
     Indication: COLORECTAL CANCER METASTATIC
     Route: 048
     Dates: start: 20181227, end: 20190110
  12. THYMOPENTIN [Concomitant]
     Active Substance: THYMOPENTIN
     Route: 065
     Dates: start: 20190112
  13. LANSOPRAZOLE. [Concomitant]
     Active Substance: LANSOPRAZOLE
     Route: 042
     Dates: start: 20190112
  14. ALPROSTADIL. [Concomitant]
     Active Substance: ALPROSTADIL
     Route: 042
     Dates: start: 20190112
  15. AMBROXOL HYDROCHLORIDE [Concomitant]
     Active Substance: AMBROXOL HYDROCHLORIDE
     Route: 042
  16. OMEPRAZOLE SODIUM [Concomitant]
     Active Substance: OMEPRAZOLE SODIUM
     Route: 042
     Dates: start: 20190111
  17. TROPISETRON HYDROCHLORIDE [Concomitant]
     Active Substance: TROPISETRON HYDROCHLORIDE
     Route: 042
     Dates: start: 20190111
  18. SODIUM BICARBONATE. [Concomitant]
     Active Substance: SODIUM BICARBONATE
     Route: 042
     Dates: start: 20190112
  19. PROPOFOL. [Concomitant]
     Active Substance: PROPOFOL
     Route: 042
  20. PHOSPHOCREATINE SODIUM [Concomitant]
     Active Substance: PHOSPHOCREATINE SODIUM
     Route: 042
     Dates: start: 20190112
  21. DOXOFYLLINE [Concomitant]
     Active Substance: DOXOFYLLINE
     Route: 042
     Dates: start: 20190112
  22. RIBONUCLEIC ACID II [Concomitant]
     Active Substance: RIBONUCLEIC ACID
     Route: 042
     Dates: start: 20190112
  23. ADRENALINE [EPINEPHRINE] [Concomitant]
     Active Substance: EPINEPHRINE
     Route: 042
     Dates: start: 20190112
  24. BLINDED BEVACIZUMAB [Suspect]
     Active Substance: BEVACIZUMAB
     Indication: COLORECTAL CANCER METASTATIC
     Route: 042
     Dates: start: 20181227, end: 20190110
  25. SODIUM CHLORIDE. [Concomitant]
     Active Substance: SODIUM CHLORIDE
     Route: 042
     Dates: start: 20190111
  26. IPRATROPIUM BROMIDE. [Concomitant]
     Active Substance: IPRATROPIUM BROMIDE
     Route: 065
     Dates: start: 20190112
  27. COMPOUND AMMONIUM GLYCYRRHIZINATE [Concomitant]
     Route: 042
     Dates: start: 20190112
  28. ADRENALINE HYDROCHLORIDE [Concomitant]
     Active Substance: EPINEPHRINE HYDROCHLORIDE
     Route: 042
     Dates: start: 20190112

REACTIONS (1)
  - Bone marrow failure [Fatal]

NARRATIVE: CASE EVENT DATE: 20190111
